FAERS Safety Report 8822943 (Version 2)
Quarter: 2012Q4

REPORT INFORMATION
  Report Type: Report from Study
  Country: ZA (occurrence: ZA)
  Receive Date: 20121003
  Receipt Date: 20121107
  Transmission Date: 20130627
  Serious: Yes (Other)
  Sender: FDA-Public Use
  Company Number: PHHY2012ZA085835

PATIENT
  Age: 86 Year
  Sex: Female

DRUGS (3)
  1. ACLASTA/ZOLEDRONATE [Suspect]
     Dosage: 5mg / 100ml yearly
     Route: 042
     Dates: start: 20120626
  2. TAMOXIFEN [Concomitant]
     Indication: BREAST CANCER
     Dosage: 20 mg, UNK
     Dates: start: 1999
  3. CALCIFEROL [Concomitant]
     Indication: OSTEOPOROSIS
     Dosage: 50000 U, UNK
     Dates: start: 20120704

REACTIONS (9)
  - Cerebral haematoma [Recovered/Resolved]
  - Syncope [Recovered/Resolved]
  - Lymphoedema [Recovered/Resolved]
  - Asthenia [Recovered/Resolved]
  - Bone pain [Recovered/Resolved]
  - Nausea [Recovered/Resolved]
  - Headache [Recovered/Resolved]
  - Pyrexia [Recovered/Resolved]
  - Back pain [Recovered/Resolved]
